FAERS Safety Report 24807817 (Version 3)
Quarter: 2025Q1

REPORT INFORMATION
  Report Type: Report from Study
  Country: US (occurrence: US)
  Receive Date: 20250106
  Receipt Date: 20250225
  Transmission Date: 20250409
  Serious: No
  Sender: ACADIA PHARMACEUTICALS
  Company Number: US-ACADIA PHARMACEUTICALS INC.-ACA-2025-TRF-000021

PATIENT
  Sex: Female

DRUGS (18)
  1. DAYBUE [Suspect]
     Active Substance: TROFINETIDE
     Indication: Rett syndrome
     Dosage: 20 MILLIGRAM, BID
     Dates: start: 20230913
  2. DAYBUE [Suspect]
     Active Substance: TROFINETIDE
  3. DAYBUE [Suspect]
     Active Substance: TROFINETIDE
  4. AZELASTINE [Concomitant]
     Active Substance: AZELASTINE
  5. BACLOFEN [Concomitant]
     Active Substance: BACLOFEN
  6. ACRIVASTINE [Concomitant]
     Active Substance: ACRIVASTINE
  7. CLONAZEPAM [Concomitant]
     Active Substance: CLONAZEPAM
  8. MOMETASONE FUROATE [Concomitant]
     Active Substance: MOMETASONE FUROATE
  9. FLUTICASONE [Concomitant]
     Active Substance: FLUTICASONE
  10. FYCOMPA [Concomitant]
     Active Substance: PERAMPANEL
  11. GLYCOPYRROLATE [Concomitant]
     Active Substance: GLYCOPYRROLATE
  12. IBUPROFEN [Concomitant]
     Active Substance: IBUPROFEN
  13. KEPPRA [Concomitant]
     Active Substance: LEVETIRACETAM
  14. MEDROXYPROGESTERONE [Concomitant]
     Active Substance: MEDROXYPROGESTERONE
  15. MELATONIN [Concomitant]
     Active Substance: MELATONIN
  16. MONTELUKAST [Concomitant]
     Active Substance: MONTELUKAST
  17. NYSTATIN [Concomitant]
     Active Substance: NYSTATIN
  18. ZYRTEC [Concomitant]
     Active Substance: CETIRIZINE HYDROCHLORIDE

REACTIONS (3)
  - Alopecia [Not Recovered/Not Resolved]
  - Madarosis [Not Recovered/Not Resolved]
  - Diarrhoea [Not Recovered/Not Resolved]
